FAERS Safety Report 24364053 (Version 2)
Quarter: 2024Q4

REPORT INFORMATION
  Report Type: Report from Study
  Country: CA (occurrence: CA)
  Receive Date: 20240925
  Receipt Date: 20241024
  Transmission Date: 20250114
  Serious: Yes (Other)
  Sender: HLS THERAPEUTICS
  Company Number: CA-HLS-202402313

PATIENT
  Sex: Female

DRUGS (2)
  1. CLOZARIL [Suspect]
     Active Substance: CLOZAPINE
     Indication: Product used for unknown indication
     Route: 048
     Dates: start: 20240906
  2. CLOZARIL [Suspect]
     Active Substance: CLOZAPINE
     Indication: Product used for unknown indication
     Route: 048
     Dates: start: 20150401, end: 20200113

REACTIONS (6)
  - Borderline personality disorder [Unknown]
  - Post-traumatic stress disorder [Unknown]
  - Sedation complication [Unknown]
  - Hallucination, auditory [Unknown]
  - Psychogenic seizure [Unknown]
  - Self-injurious ideation [Unknown]
